FAERS Safety Report 5208633-X (Version None)
Quarter: 2007Q1

REPORT INFORMATION
  Report Type: 
  Country: None (occurrence: None)
  Receive Date: 20070116
  Receipt Date: 20070102
  Transmission Date: 20070707
  Serious: Yes (Hospitalization, Disabling)
  Sender: FDA-Public Use
  Company Number: PHFR2007GB00446

PATIENT
  Age: 60 Year
  Sex: Female
  Weight: 44 kg

DRUGS (4)
  1. CYCLOSPORINE [Suspect]
     Indication: DERMATOMYOSITIS
     Dosage: 75 MG, BID
     Route: 048
     Dates: start: 20060712, end: 20060720
  2. METHOTREXATE [Suspect]
     Indication: DERMATOMYOSITIS
     Dosage: 7.5MG - 12.5MG DAILY
     Route: 048
     Dates: start: 20060516, end: 20060720
  3. IMMUNOGLOBULINS [Concomitant]
     Indication: DERMATOMYOSITIS
     Dosage: 5 X 0.4MG/KG
     Route: 042
     Dates: start: 20060301, end: 20060401
  4. PREDNISOLONE [Concomitant]
     Indication: DERMATOMYOSITIS
     Dosage: 20MG - 60MG DAILY
     Route: 048
     Dates: start: 20060724

REACTIONS (2)
  - ABDOMINAL SEPSIS [None]
  - COLITIS [None]
